FAERS Safety Report 14619028 (Version 1)
Quarter: 2018Q1

REPORT INFORMATION
  Report Type: Spontaneous
  Country: US (occurrence: US)
  Receive Date: 20180309
  Receipt Date: 20180309
  Transmission Date: 20180509
  Serious: Yes (Life-Threatening)
  Sender: FDA-Public Use
  Company Number: None

PATIENT
  Age: 61 Year
  Sex: Female
  Weight: 76.2 kg

DRUGS (1)
  1. LISINOPRIL. [Suspect]
     Active Substance: LISINOPRIL
     Indication: HYPERTENSION
     Dates: start: 201711, end: 20180225

REACTIONS (4)
  - Choking [None]
  - Mouth swelling [None]
  - Pharyngeal oedema [None]
  - Lip swelling [None]

NARRATIVE: CASE EVENT DATE: 20180220
